FAERS Safety Report 7002271-4 (Version None)
Quarter: 2010Q3

REPORT INFORMATION
  Report Type: 
  Country: None (occurrence: None)
  Receive Date: 20100917
  Receipt Date: 20100917
  Transmission Date: 20110219
  Serious: Yes (Disabling)
  Sender: FDA-Public Use
  Company Number: None

PATIENT
  Age: 55 Year
  Sex: Female
  Weight: 63.05 kg

DRUGS (1)
  1. CRESTOR [Suspect]
     Indication: ADVERSE DRUG REACTION
     Dosage: 40MG DAILY
     Dates: start: 20091201, end: 20100801

REACTIONS (4)
  - ARTHRALGIA [None]
  - ARTHROPATHY [None]
  - GAIT DISTURBANCE [None]
  - MUSCLE INJURY [None]
